FAERS Safety Report 10067198 (Version 1)
Quarter: 2014Q2

REPORT INFORMATION
  Report Type: Spontaneous
  Country: US (occurrence: None)
  Receive Date: 20140408
  Receipt Date: 20140408
  Transmission Date: 20141212
  Serious: Yes (Disabling)
  Sender: FDA-Public Use
  Company Number: None

PATIENT
  Age: 73 Year
  Sex: 0

DRUGS (2)
  1. OMEPRAZOLE [Suspect]
     Indication: DYSPEPSIA
     Route: 048
     Dates: start: 20140314, end: 20140404
  2. OMEPRAZOLE [Suspect]
     Indication: GASTROOESOPHAGEAL REFLUX DISEASE
     Route: 048
     Dates: start: 20140314, end: 20140404

REACTIONS (6)
  - Musculoskeletal pain [None]
  - Pain in extremity [None]
  - Pain in extremity [None]
  - Muscular weakness [None]
  - Activities of daily living impaired [None]
  - Impaired driving ability [None]
